FAERS Safety Report 8969422 (Version 1)
Quarter: 2012Q4

REPORT INFORMATION
  Report Type: 
  Country: BR (occurrence: BR)
  Receive Date: 20121218
  Receipt Date: 20121218
  Transmission Date: 20130627
  Serious: Yes (Other)
  Sender: FDA-Public Use
  Company Number: BR-AMGEN-BRASP2012078769

PATIENT
  Age: 59 Year
  Sex: Female
  Weight: 94 kg

DRUGS (5)
  1. ENBREL [Suspect]
     Indication: ANKYLOSING SPONDYLITIS
     Dosage: 50 mg, once weekly
     Route: 058
     Dates: start: 201209
  2. ARADOIS H [Concomitant]
     Indication: HYPERTENSION
     Dosage: [hydrochlorothiazide 50mg, losartan potassium 12.5 mg], twice daily
  3. APRESOLINE [Concomitant]
     Indication: HYPERTENSION
     Dosage: 25 mg, 2x/day
  4. NPH INSULIN [Concomitant]
     Indication: DIABETES MELLITUS
     Dosage: 10 IU, 1x/day
  5. GLIMEPIRIDE [Concomitant]
     Indication: DIABETES MELLITUS
     Dosage: 4 mg or 8 mg, daily

REACTIONS (2)
  - Rheumatoid arthritis [Not Recovered/Not Resolved]
  - Drug ineffective [Not Recovered/Not Resolved]
